FAERS Safety Report 17010673 (Version 1)
Quarter: 2019Q4

REPORT INFORMATION
  Report Type: Spontaneous
  Country: CZ (occurrence: CZ)
  Receive Date: 20191108
  Receipt Date: 20191108
  Transmission Date: 20200122
  Serious: Yes (Other)
  Sender: FDA-Public Use
  Company Number: CZ-GEHC-2019CSU005712

PATIENT

DRUGS (10)
  1. MULTIHANCE [Suspect]
     Active Substance: GADOBENATE DIMEGLUMINE
     Indication: GLIOBLASTOMA MULTIFORME
  2. GADOVIST [Suspect]
     Active Substance: GADOBUTROL
     Indication: MAGNETIC RESONANCE IMAGING
     Dosage: 496 ML IN 31 ADMINISTRATIONS
     Route: 065
  3. OMNISCAN [Suspect]
     Active Substance: GADODIAMIDE
     Indication: GLIOBLASTOMA MULTIFORME
  4. MAGNEVIST [Suspect]
     Active Substance: GADOPENTETATE DIMEGLUMINE
     Indication: MAGNETIC RESONANCE IMAGING
     Dosage: 100 ML IN 10 ADMINISTRATIONS
     Route: 065
  5. OMNISCAN [Suspect]
     Active Substance: GADODIAMIDE
     Indication: MAGNETIC RESONANCE IMAGING
     Dosage: 155 ML IN 15 ADMINISTRATIONS
     Route: 065
  6. GADOLINIUM (UNSPECIFIED) [Suspect]
     Active Substance: GADOLINIUM
     Indication: MAGNETIC RESONANCE IMAGING
     Dosage: 30 ML IN 3 ADMINISTRATIONS
     Route: 065
  7. GADOVIST [Suspect]
     Active Substance: GADOBUTROL
     Indication: GLIOBLASTOMA MULTIFORME
  8. MULTIHANCE [Suspect]
     Active Substance: GADOBENATE DIMEGLUMINE
     Indication: MAGNETIC RESONANCE IMAGING
     Dosage: 134 ML IN 12 ADMINISTRATIONS
     Route: 065
  9. GADOLINIUM (UNSPECIFIED) [Suspect]
     Active Substance: GADOLINIUM
     Indication: GLIOBLASTOMA MULTIFORME
  10. MAGNEVIST [Suspect]
     Active Substance: GADOPENTETATE DIMEGLUMINE
     Indication: GLIOBLASTOMA MULTIFORME

REACTIONS (2)
  - Magnetic resonance imaging brain abnormal [Recovered/Resolved]
  - No adverse event [Recovered/Resolved]
